FAERS Safety Report 4366706-8 (Version None)
Quarter: 2004Q2

REPORT INFORMATION
  Report Type: 
  Country: None (occurrence: None)
  Receive Date: 20040527
  Receipt Date: 20040507
  Transmission Date: 20050107
  Serious: Yes (Other)
  Sender: FDA-Public Use
  Company Number: A-US2004-06120

PATIENT
  Age: 80 Year
  Sex: Female
  Weight: 83.4 kg

DRUGS (1)
  1. TRACLEER [Suspect]
     Indication: PULMONARY HYPERTENSION
     Dosage: ORAL
     Route: 048

REACTIONS (3)
  - DYSPNOEA [None]
  - RENAL IMPAIRMENT [None]
  - RIGHT VENTRICULAR FAILURE [None]
